FAERS Safety Report 16013972 (Version 1)
Quarter: 2019Q1

REPORT INFORMATION
  Report Type: Spontaneous
  Country: SK (occurrence: SK)
  Receive Date: 20190227
  Receipt Date: 20190227
  Transmission Date: 20190418
  Serious: Yes (Hospitalization)
  Sender: FDA-Public Use
  Company Number: SK-GLAXOSMITHKLINE-SK2019GSK027607

PATIENT
  Sex: Male

DRUGS (1)
  1. VENTOLIN [Suspect]
     Active Substance: ALBUTEROL SULFATE
     Indication: PRODUCT USED FOR UNKNOWN INDICATION
     Dosage: 20 INHALATION
     Route: 055

REACTIONS (10)
  - Disturbance in attention [Unknown]
  - Restlessness [Unknown]
  - Hallucination, auditory [Unknown]
  - Anxiety [Unknown]
  - Overdose [Unknown]
  - Tearfulness [Unknown]
  - Fear [Unknown]
  - Food interaction [Unknown]
  - Psychotic disorder [Unknown]
  - Delusion [Unknown]
